FAERS Safety Report 8381284-4 (Version None)
Quarter: 2012Q2

REPORT INFORMATION
  Report Type: 
  Country: None (occurrence: None)
  Receive Date: 20120523
  Receipt Date: 20120517
  Transmission Date: 20120825
  Serious: Yes (Other)
  Sender: FDA-Public Use
  Company Number: US-ELI_LILLY_AND_COMPANY-US201204006654

PATIENT
  Sex: Female
  Weight: 81.633 kg

DRUGS (12)
  1. LIPITOR [Concomitant]
     Indication: BLOOD CHOLESTEROL INCREASED
     Dosage: 40 MG, QD
     Route: 048
  2. VITAMIN B COMPLEX CAP [Concomitant]
     Indication: NEUROPATHY PERIPHERAL
     Dosage: UNK, QD
     Route: 048
  3. NITROSTAT [Concomitant]
     Indication: CARDIAC DISORDER
     Dosage: UNK, PRN
     Route: 060
  4. ESTRING [Concomitant]
     Indication: VULVOVAGINAL DRYNESS
     Dosage: UNK
     Route: 067
     Dates: start: 20051202, end: 20100101
  5. BYETTA [Suspect]
     Dosage: 10 UG, BID
     Route: 058
     Dates: start: 20051003, end: 20120417
  6. BYETTA [Suspect]
     Dosage: 10 UG, BID
     Route: 058
     Dates: start: 20120418
  7. BYETTA [Suspect]
     Indication: TYPE 2 DIABETES MELLITUS
     Dosage: 5 UG, BID
     Route: 058
     Dates: start: 20050902, end: 20051002
  8. ACTOS [Concomitant]
     Indication: TYPE 2 DIABETES MELLITUS
     Dosage: 45 MG, QD
     Route: 048
     Dates: start: 20030917
  9. CARVEDILOL [Concomitant]
     Indication: HYPERTENSION
     Dosage: 6.25 MG, BID
     Route: 048
     Dates: start: 20060209, end: 20100101
  10. METFORMIN HCL [Concomitant]
     Indication: TYPE 2 DIABETES MELLITUS
     Dosage: 2000 MG, EACH EVENING
     Route: 048
     Dates: start: 20030917
  11. PROMETRIUM [Concomitant]
     Indication: POSTMENOPAUSE
     Dosage: 200 MG, UNK
     Route: 048
     Dates: start: 20030917, end: 20100101
  12. BUPROPION HCL [Concomitant]
     Indication: DEPRESSION
     Dosage: 150 MG, QD
     Route: 048

REACTIONS (12)
  - SPEECH DISORDER [None]
  - CONTUSION [None]
  - BLOOD PRESSURE INCREASED [None]
  - EXPOSURE TO CONTAMINATED AIR [None]
  - BREAST CANCER [None]
  - ASTHENIA [None]
  - CONFUSIONAL STATE [None]
  - DIZZINESS [None]
  - FALL [None]
  - HEADACHE [None]
  - THYROID NEOPLASM [None]
  - BLOOD GLUCOSE DECREASED [None]
